FAERS Safety Report 8180235-5 (Version None)
Quarter: 2012Q1

REPORT INFORMATION
  Report Type: 
  Country: None (occurrence: None)
  Receive Date: 20120302
  Receipt Date: 20120216
  Transmission Date: 20120608
  Serious: Yes (Other)
  Sender: FDA-Public Use
  Company Number: BR-INCYTE CORPORATION-2012IN000295

PATIENT
  Sex: Male
  Weight: 72.3 kg

DRUGS (4)
  1. ATENOLOL [Concomitant]
     Dosage: UNK
     Dates: start: 20020101
  2. DOXAZOSIN MESYLATE [Concomitant]
     Dosage: UNK
     Dates: start: 20020101
  3. INC424 [Suspect]
     Indication: MYELOFIBROSIS
     Dosage: 15 MG, BID
     Route: 048
     Dates: start: 20111124
  4. FINASTERIDE [Concomitant]

REACTIONS (1)
  - PERICARDIAL EFFUSION [None]
